FAERS Safety Report 17539462 (Version 2)
Quarter: 2020Q2

REPORT INFORMATION
  Report Type: Spontaneous
  Country: US (occurrence: US)
  Receive Date: 20200313
  Receipt Date: 20200611
  Transmission Date: 20200713
  Serious: No
  Sender: FDA-Public Use
  Company Number: US-PFIZER INC-2020109200

PATIENT
  Age: 76 Year
  Sex: Female
  Weight: 60.78 kg

DRUGS (4)
  1. PREDNISONE. [Concomitant]
     Active Substance: PREDNISONE
     Dosage: 3 DF, DAILY (RECENTLY ON 3 PREDNISONE TABLETS A DAY)
  2. PREDNISONE. [Concomitant]
     Active Substance: PREDNISONE
     Dosage: 5 DF, DAILY (TAKING 5 A DAY OF THE PREDNISONE)
  3. LYRICA [Suspect]
     Active Substance: PREGABALIN
     Indication: PAIN
     Dosage: 75 MG, DAILY (25MG, 1 CAPSULE BY MOUTH IN THE MORNING, 2 BY MOUTH IN THE EVENING)
     Route: 048
  4. PREDNISONE. [Concomitant]
     Active Substance: PREDNISONE
     Dosage: 15 MG, DAILY (IN THEBEGINNING SHE WAS ON 15MG A DAY)

REACTIONS (6)
  - Weight decreased [Unknown]
  - Malaise [Unknown]
  - Therapeutic product effect incomplete [Unknown]
  - Body height decreased [Unknown]
  - Intentional product misuse [Unknown]
  - Fatigue [Unknown]
